FAERS Safety Report 14579919 (Version 1)
Quarter: 2018Q1

REPORT INFORMATION
  Report Type: Spontaneous
  Country: US (occurrence: US)
  Receive Date: 20180228
  Receipt Date: 20180228
  Transmission Date: 20180509
  Serious: No
  Sender: FDA-Public Use
  Company Number: US-SHIRE-US201806326

PATIENT
  Sex: Female

DRUGS (2)
  1. XIIDRA [Suspect]
     Active Substance: LIFITEGRAST
     Indication: DRY EYE
     Route: 065
  2. DORZOLAMIDE/TIMOLOL                /01419801/ [Concomitant]
     Active Substance: DORZOLAMIDE\TIMOLOL
     Indication: OPEN ANGLE GLAUCOMA

REACTIONS (1)
  - Ocular hyperaemia [Unknown]
